FAERS Safety Report 5125334-7 (Version None)
Quarter: 2006Q4

REPORT INFORMATION
  Report Type: 
  Country: None (occurrence: None)
  Receive Date: 20061006
  Receipt Date: 20060925
  Transmission Date: 20070319
  Serious: Yes (Other)
  Sender: FDA-Public Use
  Company Number: 2006036077

PATIENT
  Age: 57 Year
  Sex: Female
  Weight: 50.8029 kg

DRUGS (3)
  1. NORVASC [Suspect]
     Indication: ANGINA PECTORIS
     Dosage: 5 MG (5 MG, 1 IN 1 D)
  2. NORVASC [Suspect]
     Indication: HYPERTENSION
     Dosage: 5 MG (5 MG, 1 IN 1 D)
  3. MAXZIDE [Concomitant]

REACTIONS (2)
  - HEPATIC ENZYME INCREASED [None]
  - RENAL FAILURE [None]
